FAERS Safety Report 16718697 (Version 1)
Quarter: 2019Q3

REPORT INFORMATION
  Report Type: Spontaneous
  Country: US (occurrence: US)
  Receive Date: 20190820
  Receipt Date: 20190820
  Transmission Date: 20191005
  Serious: No
  Sender: FDA-Public Use
  Company Number: US-009507513-1907USA013707

PATIENT
  Age: 28 Year
  Sex: Male

DRUGS (2)
  1. PROVENTIL [Suspect]
     Active Substance: ALBUTEROL
     Indication: ASTHMA
     Dosage: DOSE: 4-6 PUFFS A DAY OR AS NEEDED
     Route: 055
     Dates: start: 201812
  2. ADVAIR HFA [Concomitant]
     Active Substance: FLUTICASONE PROPIONATE\SALMETEROL XINAFOATE
     Dosage: UNK

REACTIONS (7)
  - Product package associated injury [Recovered/Resolved]
  - Product dose omission [Unknown]
  - Urticaria [Recovered/Resolved]
  - Product container issue [Unknown]
  - Contusion [Recovered/Resolved]
  - Poor quality device used [Unknown]
  - Wheezing [Recovered/Resolved]

NARRATIVE: CASE EVENT DATE: 201907
